FAERS Safety Report 9340435 (Version 1)
Quarter: 2013Q2

REPORT INFORMATION
  Report Type: Spontaneous
  Country: US (occurrence: None)
  Receive Date: 20130610
  Receipt Date: 20130610
  Transmission Date: 20140414
  Serious: No
  Sender: FDA-Public Use
  Company Number: None

PATIENT
  Age: 86 Year
  Sex: Male
  Weight: 63.05 kg

DRUGS (1)
  1. ZYCLARA [Suspect]
     Indication: SKIN DISORDER
     Dosage: SPARINGLY  1 PER DAY
     Dates: start: 20130416, end: 20130425

REACTIONS (2)
  - Skin disorder [None]
  - Haemorrhage [None]
